FAERS Safety Report 5807268-5 (Version None)
Quarter: 2008Q3

REPORT INFORMATION
  Report Type: 
  Country: None (occurrence: None)
  Receive Date: 20080709
  Receipt Date: 20080709
  Transmission Date: 20090109
  Serious: Yes (Other)
  Sender: FDA-Public Use
  Company Number: None

PATIENT
  Sex: Male
  Weight: 86.1834 kg

DRUGS (1)
  1. LEVAQUIN [Suspect]
     Indication: SUBCUTANEOUS ABSCESS
     Dosage: Q D PO
     Route: 048
     Dates: start: 20080625, end: 20080630

REACTIONS (2)
  - TENDONITIS [None]
  - WEIGHT BEARING DIFFICULTY [None]
